FAERS Safety Report 5651622-1 (Version None)
Quarter: 2008Q1

REPORT INFORMATION
  Report Type: 
  Country: None (occurrence: None)
  Receive Date: 20080305
  Receipt Date: 20080229
  Transmission Date: 20080703
  Serious: Yes (Hospitalization)
  Sender: FDA-Public Use
  Company Number: US-AVENTIS-200810510GDDC

PATIENT
  Age: 54 Year
  Sex: Male
  Weight: 85 kg

DRUGS (9)
  1. DOCETAXEL [Suspect]
     Route: 042
     Dates: start: 20071212, end: 20071212
  2. CISPLATIN [Suspect]
     Route: 042
     Dates: start: 20071212, end: 20071212
  3. FLUOROURACIL [Suspect]
     Dosage: DOSE: 2070 A DAY
     Route: 042
     Dates: start: 20071212, end: 20071212
  4. AUGMENTIN '125' [Concomitant]
  5. ZANTAC 150 [Concomitant]
  6. ALBUTEROL [Concomitant]
     Route: 055
  7. MULTI-VITAMINS [Concomitant]
  8. CORTISONE [Concomitant]
     Route: 055
  9. DEXAMETHASONE TAB [Concomitant]

REACTIONS (3)
  - FEBRILE NEUTROPENIA [None]
  - HYPONATRAEMIA [None]
  - MUCOSAL INFLAMMATION [None]
